FAERS Safety Report 9717465 (Version 2)
Quarter: 2013Q4

REPORT INFORMATION
  Report Type: Spontaneous
  Country: US (occurrence: US)
  Receive Date: 20131127
  Receipt Date: 20131127
  Transmission Date: 20140711
  Serious: No
  Sender: FDA-Public Use
  Company Number: US-GILEAD-2009-0019854

PATIENT
  Sex: Female
  Weight: 45.81 kg

DRUGS (6)
  1. LETAIRIS [Suspect]
     Indication: PULMONARY ARTERIAL HYPERTENSION
     Route: 048
     Dates: start: 20081226
  2. COUMADIN [Concomitant]
     Route: 048
  3. LASIX [Concomitant]
     Route: 048
  4. SOTALOL [Concomitant]
     Route: 048
  5. DIGOXIN [Concomitant]
     Route: 048
  6. ZOLOFT [Concomitant]
     Route: 048

REACTIONS (3)
  - Local swelling [Unknown]
  - Oedema peripheral [Unknown]
  - Swelling face [Unknown]
